FAERS Safety Report 24782190 (Version 1)
Quarter: 2024Q4

REPORT INFORMATION
  Report Type: Spontaneous
  Country: US (occurrence: US)
  Receive Date: 20241227
  Receipt Date: 20241227
  Transmission Date: 20250115
  Serious: No
  Sender: ELEVATE ORAL CARE
  Company Number: US-Elevate Oral Care-2167896

PATIENT
  Sex: Male

DRUGS (1)
  1. FLUORIMAX 5000 [Suspect]
     Active Substance: SODIUM FLUORIDE
     Indication: Dental caries
     Dates: start: 2024, end: 2024

REACTIONS (1)
  - Dermatitis allergic [Recovered/Resolved]

NARRATIVE: CASE EVENT DATE: 20241022
